FAERS Safety Report 12289436 (Version 1)
Quarter: 2016Q2

REPORT INFORMATION
  Report Type: Spontaneous
  Country: US (occurrence: None)
  Receive Date: 20160420
  Receipt Date: 20160420
  Transmission Date: 20160815
  Serious: Yes (Life-Threatening)
  Sender: FDA-Public Use
  Company Number: None

PATIENT
  Age: 59 Year
  Sex: Female
  Weight: 97.52 kg

DRUGS (12)
  1. TORSEMIDE. [Concomitant]
     Active Substance: TORSEMIDE
  2. LYRICA [Concomitant]
     Active Substance: PREGABALIN
  3. BREO ELLIPTA [Concomitant]
     Active Substance: FLUTICASONE FUROATE\VILANTEROL TRIFENATATE
  4. WELLBUTRIN XL [Concomitant]
     Active Substance: BUPROPION HYDROCHLORIDE
  5. SINGULAIR [Concomitant]
     Active Substance: MONTELUKAST SODIUM
  6. ALLEGRA [Concomitant]
     Active Substance: FEXOFENADINE HYDROCHLORIDE
  7. ORPHENADRINE [Concomitant]
     Active Substance: ORPHENADRINE
  8. PROBIOTIC [Concomitant]
     Active Substance: PROBIOTICS NOS
  9. PLAQUENIL [Concomitant]
     Active Substance: HYDROXYCHLOROQUINE SULFATE
  10. ZYRTEC [Concomitant]
     Active Substance: CETIRIZINE HYDROCHLORIDE
  11. DEXILANT [Concomitant]
     Active Substance: DEXLANSOPRAZOLE
  12. TANZEUM [Suspect]
     Active Substance: ALBIGLUTIDE
     Indication: INSULIN RESISTANCE
     Dosage: ONCE A DAY GIVEN INTO/UNDER THE SKIN
     Route: 058
     Dates: start: 20160120, end: 20160120

REACTIONS (4)
  - Urticaria [None]
  - Pruritus [None]
  - Wheezing [None]
  - Peripheral swelling [None]

NARRATIVE: CASE EVENT DATE: 20160121
